FAERS Safety Report 7759099 (Version 2)
Quarter: 2012Q4

REPORT INFORMATION
  Report Type: 
  Country: DK (occurrence: DK)
  Receive Date: 20110113
  Receipt Date: 20121231
  Transmission Date: 20130627
  Serious: Yes (Other)
  Sender: FDA-Public Use
  Company Number: DK-RANBAXY-2010R1-40869

PATIENT
  Age: 33 Year
  Sex: Female

DRUGS (3)
  1. PARACETAMOL [Suspect]
     Indication: HEADACHE
     Dosage: 1 g, qid
     Route: 065
  2. TRAMADOL [Suspect]
     Indication: HEADACHE
     Dosage: 100 mg, qid
     Route: 065
  3. MORPHINE [Suspect]
     Indication: HEADACHE
     Dosage: 10 mg, tid
     Route: 065

REACTIONS (1)
  - Headache [Recovering/Resolving]
